FAERS Safety Report 9918204 (Version 1)
Quarter: 2014Q1

REPORT INFORMATION
  Report Type: Spontaneous
  Country: KR (occurrence: KR)
  Receive Date: 20140223
  Receipt Date: 20140223
  Transmission Date: 20141002
  Serious: Yes (Other)
  Sender: FDA-Public Use
  Company Number: KR-MYLANLABS-2014S1003421

PATIENT
  Age: 21 Year
  Sex: Male

DRUGS (11)
  1. OLANZAPINE [Suspect]
     Indication: CONDUCT DISORDER
     Dosage: 10MG
     Route: 065
     Dates: end: 201003
  2. OLANZAPINE [Suspect]
     Indication: OFF LABEL USE
     Dosage: 10MG
     Route: 065
     Dates: end: 201003
  3. VALPROATE [Interacting]
     Indication: CONDUCT DISORDER
     Dosage: 1000MG
     Route: 065
  4. VALPROATE [Interacting]
     Indication: OFF LABEL USE
     Dosage: 1000MG
     Route: 065
  5. QUETIAPINE [Suspect]
     Indication: CONDUCT DISORDER
     Dosage: INCREASED UP TO 800MG
     Route: 065
     Dates: start: 201003, end: 201101
  6. QUETIAPINE [Suspect]
     Indication: OFF LABEL USE
     Dosage: INCREASED UP TO 800MG
     Route: 065
     Dates: start: 201003, end: 201101
  7. RISPERIDONE [Suspect]
     Indication: CONDUCT DISORDER
     Dosage: 2MG
     Route: 065
  8. RISPERIDONE [Suspect]
     Indication: OFF LABEL USE
     Dosage: 2MG
     Route: 065
  9. ARIPIPRAZOLE [Suspect]
     Indication: CONDUCT DISORDER
     Dosage: 5MG
     Route: 065
     Dates: start: 201109
  10. VALPROIC ACID [Concomitant]
     Indication: CONDUCT DISORDER
     Dosage: 1000MG
     Route: 065
     Dates: end: 201101
  11. LITHIUM [Concomitant]
     Indication: CONDUCT DISORDER
     Dosage: 600MG
     Route: 065
     Dates: end: 201202

REACTIONS (2)
  - Neutropenia [Recovered/Resolved]
  - Gastrointestinal disorder [Unknown]
